FAERS Safety Report 16034433 (Version 2)
Quarter: 2019Q2

REPORT INFORMATION
  Report Type: Spontaneous
  Country: US (occurrence: US)
  Receive Date: 20190305
  Receipt Date: 20190418
  Transmission Date: 20190711
  Serious: No
  Sender: FDA-Public Use
  Company Number: US-PFIZER INC-2019090353

PATIENT
  Age: 4 Year
  Sex: Male

DRUGS (1)
  1. EUCRISA [Suspect]
     Active Substance: CRISABOROLE
     Indication: DERMATITIS ATOPIC
     Dosage: UNK
     Route: 061
     Dates: start: 20190115, end: 20190204

REACTIONS (4)
  - Application site urticaria [Unknown]
  - Condition aggravated [Unknown]
  - Skin disorder [Unknown]
  - Application site pruritus [Unknown]

NARRATIVE: CASE EVENT DATE: 2019
